FAERS Safety Report 7097557-1 (Version None)
Quarter: 2010Q4

REPORT INFORMATION
  Report Type: 
  Country: None (occurrence: None)
  Receive Date: 20101111
  Receipt Date: 20101108
  Transmission Date: 20110411
  Serious: Yes (Other)
  Sender: FDA-Public Use
  Company Number: DE-B.I. PHARMACEUTICALS,INC./RIDGEFIELD-2010-DE-06132GD

PATIENT
  Sex: Female

DRUGS (3)
  1. RANITIDINE [Suspect]
     Indication: URTICARIA
  2. EBASTINE [Suspect]
     Indication: URTICARIA
     Dosage: 4 TIMES THE STANDARD DOSE
  3. MONTELUKAST [Suspect]
     Indication: URTICARIA

REACTIONS (2)
  - BLOOD IMMUNOGLOBULIN E INCREASED [None]
  - DRUG INEFFECTIVE [None]
